FAERS Safety Report 4930822-X (Version None)
Quarter: 2006Q1

REPORT INFORMATION
  Report Type: 
  Country: None (occurrence: None)
  Receive Date: 20060302
  Receipt Date: 20060222
  Transmission Date: 20060701
  Serious: Yes (Hospitalization)
  Sender: FDA-Public Use
  Company Number: DE-ABBOTT-06P-062-0325784-01

PATIENT
  Sex: Male
  Weight: 77 kg

DRUGS (5)
  1. RITONAVIR SOFT GELATIN CAPSULES [Suspect]
     Indication: HIV INFECTION
     Route: 048
     Dates: start: 20041007
  2. APTIVUS [Concomitant]
     Indication: HIV INFECTION
     Route: 048
     Dates: start: 20060107
  3. TRIZIVIR [Concomitant]
     Indication: HIV INFECTION
     Route: 048
     Dates: start: 20041007
  4. TENOFOVIR [Concomitant]
     Indication: HIV INFECTION
     Route: 048
     Dates: start: 20041007
  5. T 20 [Concomitant]
     Indication: HIV INFECTION
     Route: 058
     Dates: start: 20041007

REACTIONS (1)
  - LOWER LIMB FRACTURE [None]
